FAERS Safety Report 9757688 (Version 2)
Quarter: 2013Q4

REPORT INFORMATION
  Report Type: Spontaneous
  Country: JP (occurrence: JP)
  Receive Date: 20131216
  Receipt Date: 20131231
  Transmission Date: 20140711
  Serious: Yes (Death, Hospitalization)
  Sender: FDA-Public Use
  Company Number: JP-BRISTOL-MYERS SQUIBB COMPANY-19912278

PATIENT
  Age: 79 Year
  Sex: Female

DRUGS (3)
  1. ERBITUX SOLN FOR INF 5MG/ML [Suspect]
     Indication: COLORECTAL CANCER
     Route: 041
     Dates: start: 20131015, end: 20131029
  2. OXALIPLATIN [Suspect]
     Indication: COLORECTAL CANCER
     Route: 041
     Dates: start: 20131015, end: 20131015
  3. TS-1 [Suspect]
     Indication: COLORECTAL CANCER
     Route: 048
     Dates: start: 20131015, end: 20131028

REACTIONS (1)
  - Embolic stroke [Fatal]
